FAERS Safety Report 8407954-7 (Version None)
Quarter: 2012Q2

REPORT INFORMATION
  Report Type: 
  Country: None (occurrence: None)
  Receive Date: 20120604
  Receipt Date: 20120529
  Transmission Date: 20120825
  Serious: Yes (Other)
  Sender: FDA-Public Use
  Company Number: JP-PFIZER INC-2012128528

PATIENT
  Age: 35 Year
  Sex: Female

DRUGS (3)
  1. EPIRUBICIN HYDROCHLORIDE [Suspect]
     Dosage: 75 MG/M2, 1X/DAY
  2. FLUOROURACIL [Concomitant]
     Dosage: UNK
  3. CYCLOPHOSPHAMIDE [Concomitant]
     Dosage: UNK

REACTIONS (1)
  - VASCULITIS [None]
